FAERS Safety Report 10110465 (Version 2)
Quarter: 2014Q3

REPORT INFORMATION
  Report Type: Spontaneous
  Country: US (occurrence: None)
  Receive Date: 20140421
  Receipt Date: 20140722
  Transmission Date: 20150326
  Serious: No
  Sender: FDA-Public Use
  Company Number: AEGR000332

PATIENT
  Age: 67 Year
  Sex: Male
  Weight: 86.6 kg

DRUGS (11)
  1. KRILL OMEGA RED OIL (OMEGA-3 FATTY ACIDS) [Concomitant]
  2. ASA (ASA) [Concomitant]
  3. ENALAPRIL (ENALAPRIL) [Concomitant]
     Active Substance: ENALAPRIL
  4. VITAMIN C [Concomitant]
     Active Substance: ASCORBIC ACID
  5. DEXILANT [Concomitant]
     Active Substance: DEXLANSOPRAZOLE
  6. LEVOTHYROXINE (LEVOTHYROXINE) [Concomitant]
     Active Substance: LEVOTHYROXINE
  7. PLAQUENIL(HYDROXYCHLOROQUINEI SULFATE) [Concomitant]
  8. CALCIUM (CALCIUM) [Concomitant]
     Active Substance: CALCIUM
  9. JUXTAPID [Suspect]
     Active Substance: LOMITAPIDE MESYLATE
     Indication: TYPE IIA HYPERLIPIDAEMIA
     Route: 048
     Dates: start: 2014
  10. PRAVASTATIN (PRAVASTATIN SODIUM) [Concomitant]
  11. MULTIVITAMIN (VITAMINS NOS) [Concomitant]

REACTIONS (4)
  - Constipation [None]
  - Headache [None]
  - Flatulence [None]
  - Dysuria [None]

NARRATIVE: CASE EVENT DATE: 201402
